FAERS Safety Report 11801665 (Version 1)
Quarter: 2015Q4

REPORT INFORMATION
  Report Type: Spontaneous
  Country: US (occurrence: None)
  Receive Date: 20151203
  Receipt Date: 20151203
  Transmission Date: 20160305
  Serious: Yes (Life-Threatening, Hospitalization, Other)
  Sender: FDA-Public Use
  Company Number: None

PATIENT
  Age: 69 Year
  Sex: Female
  Weight: 78 kg

DRUGS (8)
  1. ENOXAPARIIN [Suspect]
     Active Substance: ENOXAPARIN
     Indication: THROMBOSIS PROPHYLAXIS
     Dates: start: 20151009
  2. ZOFRAN ODT [Concomitant]
     Active Substance: ONDANSETRON HYDROCHLORIDE
  3. ASPIRIN. [Concomitant]
     Active Substance: ASPIRIN
  4. ENOXAPARIN [Suspect]
     Active Substance: ENOXAPARIN
     Indication: TROPONIN INCREASED
     Dosage: 30 MG ?ONCE?SQ
     Dates: start: 20151009
  5. ENOXAPARIN [Suspect]
     Active Substance: ENOXAPARIN
     Indication: CATHETERISATION CARDIAC
     Dosage: 30 MG ?ONCE?SQ
     Dates: start: 20151009
  6. IOPAMIDOL (ISOVUE-370) [Concomitant]
  7. METOCLOPRAMIDE HCI [Concomitant]
  8. PANTOPRAZOLE SODIUM. [Concomitant]
     Active Substance: PANTOPRAZOLE SODIUM

REACTIONS (4)
  - Haemoglobin decreased [None]
  - Gastrointestinal haemorrhage [None]
  - Haematocrit decreased [None]
  - Hyperhidrosis [None]

NARRATIVE: CASE EVENT DATE: 20151010
